FAERS Safety Report 7316016-1 (Version None)
Quarter: 2011Q1

REPORT INFORMATION
  Report Type: 
  Country: None (occurrence: None)
  Receive Date: 20110225
  Receipt Date: 20110216
  Transmission Date: 20110831
  Serious: Yes (Other)
  Sender: FDA-Public Use
  Company Number: PHHY2009BR56399

PATIENT
  Sex: Female

DRUGS (3)
  1. RIVOTRIL [Concomitant]
     Dosage: UNK
  2. EXELON [Suspect]
     Dosage: 4.6 MG/24 HOURS
     Route: 062
  3. TRILEPTAL [Concomitant]

REACTIONS (5)
  - SKIN LESION [None]
  - HYPERSENSITIVITY [None]
  - FRONTOTEMPORAL DEMENTIA [None]
  - APPLICATION SITE ERYTHEMA [None]
  - SKIN IRRITATION [None]
